FAERS Safety Report 9160964 (Version 1)
Quarter: 2013Q1

REPORT INFORMATION
  Report Type: Spontaneous
  Country: US (occurrence: US)
  Receive Date: 20130313
  Receipt Date: 20130313
  Transmission Date: 20140127
  Serious: Yes (Other)
  Sender: FDA-Public Use
  Company Number: US-PFIZER INC-2013083294

PATIENT
  Age: 12 Year
  Sex: Male
  Weight: 81.63 kg

DRUGS (3)
  1. ZOLOFT [Suspect]
     Dosage: 25 MG, UNK
     Dates: start: 201302, end: 201302
  2. ZOLOFT [Suspect]
     Dosage: 50 MG, UNK
     Dates: start: 201302, end: 201303
  3. PROZAC [Suspect]
     Dosage: 10 MG, UNK
     Dates: start: 201303

REACTIONS (1)
  - Depression [Not Recovered/Not Resolved]
